FAERS Safety Report 13037153 (Version 2)
Quarter: 2017Q1

REPORT INFORMATION
  Report Type: Report from Study
  Country: KR (occurrence: KR)
  Receive Date: 20161216
  Receipt Date: 20170127
  Transmission Date: 20170428
  Serious: Yes (Hospitalization)
  Sender: FDA-Public Use
  Company Number: KR-B.I. PHARMACEUTICALS,INC./RIDGEFIELD-2016-BI-084223

PATIENT
  Age: 55 Year
  Sex: Male
  Weight: 58 kg

DRUGS (7)
  1. PACLITAXEL. [Suspect]
     Active Substance: PACLITAXEL
     Indication: GASTRIC CANCER
     Route: 042
     Dates: start: 20161122, end: 20161122
  2. LANSOPRAZOLE. [Concomitant]
     Active Substance: LANSOPRAZOLE
     Indication: CHRONIC GASTRITIS
     Route: 048
     Dates: start: 20160923
  3. PACLITAXEL. [Suspect]
     Active Substance: PACLITAXEL
     Route: 042
     Dates: start: 20161212
  4. CARDUUS MARIANUS [Concomitant]
     Indication: METASTASES TO LIVER
     Dosage: EXT
     Route: 048
     Dates: start: 20161004
  5. AFATINIB [Suspect]
     Active Substance: AFATINIB
     Route: 048
     Dates: start: 20161212
  6. URSODEOXYCHOLIC ACID [Concomitant]
     Active Substance: URSODIOL
     Indication: METASTASES TO LIVER
     Route: 048
     Dates: start: 20161004
  7. AFATINIB [Suspect]
     Active Substance: AFATINIB
     Indication: GASTRIC CANCER
     Route: 048
     Dates: start: 20161122, end: 20161207

REACTIONS (1)
  - Neutropenia [Recovered/Resolved]

NARRATIVE: CASE EVENT DATE: 20161207
